FAERS Safety Report 18381223 (Version 5)
Quarter: 2020Q4

REPORT INFORMATION
  Report Type: Spontaneous
  Country: GB (occurrence: GB)
  Receive Date: 20201014
  Receipt Date: 20201105
  Transmission Date: 20210114
  Serious: Yes (Life-Threatening, Other)
  Sender: FDA-Public Use
  Company Number: GB-PFIZER INC-2020394256

PATIENT
  Age: 45 Year
  Sex: Female

DRUGS (2)
  1. IBUPROFEN. [Suspect]
     Active Substance: IBUPROFEN
     Dosage: UNK (UP TO 100 G WITHIN 24 HOURS)
  2. IBUPROFEN. [Suspect]
     Active Substance: IBUPROFEN
     Dosage: UNK

REACTIONS (5)
  - Hypoaldosteronism [Recovered/Resolved]
  - Paralysis [Unknown]
  - Overdose [Unknown]
  - Renal tubular acidosis [Recovered/Resolved]
  - Toxicity to various agents [Unknown]
